FAERS Safety Report 6506111-9 (Version None)
Quarter: 2009Q4

REPORT INFORMATION
  Report Type: 
  Country: None (occurrence: None)
  Receive Date: 20091217
  Receipt Date: 20091217
  Transmission Date: 20100525
  Serious: No
  Sender: FDA-Public Use
  Company Number: None

PATIENT
  Age: 4 Year
  Sex: Male

DRUGS (2)
  1. SINGULAIR [Suspect]
     Indication: ASTHMA
     Dosage: 4 MG DAILY PO
     Route: 048
     Dates: start: 20091113, end: 20091114
  2. CHILDREN'S ZYRTEC ALLERGY [Suspect]
     Indication: HYPERSENSITIVITY
     Dosage: 5 MG -1 TSP- UNKNOWN PO
     Route: 048
     Dates: start: 20091114, end: 20091118

REACTIONS (3)
  - ABNORMAL BEHAVIOUR [None]
  - DECREASED APPETITE [None]
  - EATING DISORDER [None]
